FAERS Safety Report 8386745-X (Version None)
Quarter: 2012Q2

REPORT INFORMATION
  Report Type: 
  Country: None (occurrence: None)
  Receive Date: 20120525
  Receipt Date: 20120521
  Transmission Date: 20120825
  Serious: Yes (Death)
  Sender: FDA-Public Use
  Company Number: GR-ASTRAZENECA-2012SE32695

PATIENT
  Age: 65 Year
  Sex: Male

DRUGS (5)
  1. HEPARIN LOW MOLECULAR WEIGHT [Concomitant]
     Indication: ACUTE CORONARY SYNDROME
     Route: 042
     Dates: start: 20120513
  2. ASPIRIN [Concomitant]
     Indication: ACUTE CORONARY SYNDROME
     Route: 048
  3. PULMICORT [Concomitant]
     Indication: CHRONIC OBSTRUCTIVE PULMONARY DISEASE
     Route: 055
  4. BRILIQUE [Suspect]
     Indication: ACUTE CORONARY SYNDROME
     Route: 048
     Dates: start: 20120513
  5. BEROVENT [Concomitant]
     Indication: CHRONIC OBSTRUCTIVE PULMONARY DISEASE
     Route: 055

REACTIONS (5)
  - ACUTE MYOCARDIAL INFARCTION [None]
  - ARRHYTHMIA [None]
  - DYSPNOEA [None]
  - BRONCHOSPASM [None]
  - CARDIAC ARREST [None]
